FAERS Safety Report 16872673 (Version 8)
Quarter: 2020Q3

REPORT INFORMATION
  Report Type: Spontaneous
  Country: FR (occurrence: FR)
  Receive Date: 20191001
  Receipt Date: 20200922
  Transmission Date: 20201102
  Serious: Yes (Hospitalization, Other)
  Sender: FDA-Public Use
  Company Number: FR-MYLANLABS-2019M1090859

PATIENT
  Age: 72 Year
  Sex: Female
  Weight: 75 kg

DRUGS (26)
  1. LERCANIDIPINE TEVA [Concomitant]
     Dosage: DURING THE PERIOD FROM DEC?2016 TO SEPT?2018
  2. CHOLECALCIFEROL MYLAN [Concomitant]
     Dosage: DURING THE PERIOD FROM DEC?2016 TO SEPT?2018
  3. VALSARTAN/HCT MYLAN 160 MG/25 MG FILMTABLETTEN [Suspect]
     Active Substance: HYDROCHLOROTHIAZIDE\VALSARTAN
     Indication: HYPERTENSION
     Dosage: 1 DOSAGE FORM
  4. KENZEN [Concomitant]
     Active Substance: CANDESARTAN CILEXETIL
     Dosage: 1?0?0
  5. CHOLECALCIFEROL MYLAN [Concomitant]
     Dosage: UNK
  6. KENZEN [Concomitant]
     Active Substance: CANDESARTAN CILEXETIL
     Dosage: UNK
  7. COKENZEN [Concomitant]
     Active Substance: CANDESARTAN CILEXETIL\HYDROCHLOROTHIAZIDE
     Dosage: SWITCHED FROM CANDESARTAN HYDROCHLOROTHIAZIDE (NOS)
  8. DOLIPRAN                           /00020001/ [Concomitant]
     Active Substance: ACETAMINOPHEN
     Dosage: UNK, PRN
  9. DOLIPRAN                           /00020001/ [Concomitant]
     Active Substance: ACETAMINOPHEN
     Dosage: DURING THE PERIOD FROM DEC?2016 TO SEPT?2018
  10. CANDESARTAN+HYDROCHLOROTHIAZIDE [Concomitant]
     Active Substance: CANDESARTAN CILEXETIL\HYDROCHLOROTHIAZIDE
     Dosage: UNK
  11. VALSARTAN/HYDROCHLOROTHIAZIDE TEVA [Suspect]
     Active Substance: HYDROCHLOROTHIAZIDE\VALSARTAN
     Dosage: UNK
  12. ATORVASTATINE PFIZER [Concomitant]
     Active Substance: ATORVASTATIN
     Dosage: 0?0?1
  13. ATORVASTATINE PFIZER [Concomitant]
     Active Substance: ATORVASTATIN
     Dosage: DURING THE PERIOD FROM DEC?2016 TO SEPT?2018
  14. DOLIPRAN                           /00020001/ [Concomitant]
     Active Substance: ACETAMINOPHEN
     Dosage: UNK
  15. STRUCTOFLEX [Concomitant]
     Active Substance: GLUCOSAMINE
     Dosage: DURING THE PERIOD FROM DEC?2016 TO SEPT?2018
  16. VALSARTAN/HCT MYLAN 160 MG/25 MG FILMTABLETTEN [Suspect]
     Active Substance: HYDROCHLOROTHIAZIDE\VALSARTAN
     Dosage: 1 DOSAGE FORM
  17. VALSARTAN/HCT MYLAN 160 MG/25 MG FILMTABLETTEN [Suspect]
     Active Substance: HYDROCHLOROTHIAZIDE\VALSARTAN
     Dosage: 1 DOSAGE FORM: VALSARTAN= 160 MG
     Route: 065
  18. VALSARTAN/HYDROCHLOROTHIAZIDE TEVA [Suspect]
     Active Substance: HYDROCHLOROTHIAZIDE\VALSARTAN
     Indication: HYPERTENSION
     Dosage: 1 DOSAGE FORM: VALSARTAN= 160 MG AND
     Route: 065
  19. VALSARTAN/HYDROCHLOROTHIAZIDE TEVA [Suspect]
     Active Substance: HYDROCHLOROTHIAZIDE\VALSARTAN
     Dosage: UNK
  20. LERCANIDIPINE TEVA [Concomitant]
     Dosage: 1?0?0
  21. CHOLECALCIFEROL ARROW [Concomitant]
     Dosage: UNK
  22. CHOLECALCIFEROL ARROW [Concomitant]
     Dosage: DURING THE PERIOD FROM DEC?2016 TO SEPT?2018
  23. VALSARTAN/HYDROCHLOROTHIAZIDE TEVA [Suspect]
     Active Substance: HYDROCHLOROTHIAZIDE\VALSARTAN
     Dosage: 1 DOSAGE FORM: VALSARTAN= 160 MG
  24. ATORVASTATINE PFIZER [Concomitant]
     Active Substance: ATORVASTATIN
     Dosage: UNK
  25. CHOLECALCIFEROL [Concomitant]
     Active Substance: CHOLECALCIFEROL
     Dosage: 1?0?0
  26. CHOLECALCIFEROL [Concomitant]
     Active Substance: CHOLECALCIFEROL
     Dosage: UNK UNK, QD

REACTIONS (4)
  - Malignant peritoneal neoplasm [Recovering/Resolving]
  - Ovarian cancer [Recovering/Resolving]
  - Product impurity [Unknown]
  - Gastrointestinal injury [Recovering/Resolving]

NARRATIVE: CASE EVENT DATE: 201809
